FAERS Safety Report 13592668 (Version 4)
Quarter: 2017Q2

REPORT INFORMATION
  Report Type: Report from Study
  Country: US (occurrence: US)
  Receive Date: 20170530
  Receipt Date: 20170628
  Transmission Date: 20170830
  Serious: Yes (Other)
  Sender: FDA-Public Use
  Company Number: US-JNJFOC-20170523291

PATIENT
  Age: 52 Year
  Sex: Female
  Weight: 60 kg

DRUGS (23)
  1. CISAPRIDE [Suspect]
     Active Substance: CISAPRIDE
     Indication: IMPAIRED GASTRIC EMPTYING
     Route: 048
     Dates: start: 20160305, end: 20170518
  2. BUSPAR [Concomitant]
     Active Substance: BUSPIRONE HYDROCHLORIDE
     Indication: ANXIETY
     Route: 048
  3. NASONEX [Concomitant]
     Active Substance: MOMETASONE FUROATE
     Indication: RHINITIS ALLERGIC
     Route: 065
  4. GLUCAGON. [Concomitant]
     Active Substance: GLUCAGON
     Indication: HYPOGLYCAEMIA
     Route: 065
  5. CISAPRIDE [Suspect]
     Active Substance: CISAPRIDE
     Indication: CONSTIPATION
     Route: 048
     Dates: start: 20151204, end: 20160304
  6. CISAPRIDE [Suspect]
     Active Substance: CISAPRIDE
     Indication: GASTROOESOPHAGEAL REFLUX DISEASE
     Route: 048
     Dates: start: 20160305, end: 20170518
  7. MEVACOR [Concomitant]
     Active Substance: LOVASTATIN
     Indication: BLOOD CHOLESTEROL INCREASED
     Route: 048
  8. DRISDOL [Concomitant]
     Active Substance: ERGOCALCIFEROL
     Indication: VITAMIN D DEFICIENCY
     Route: 048
  9. AMITIZA [Concomitant]
     Active Substance: LUBIPROSTONE
     Indication: CONSTIPATION
     Route: 048
  10. CISAPRIDE [Suspect]
     Active Substance: CISAPRIDE
     Indication: IMPAIRED GASTRIC EMPTYING
     Route: 048
     Dates: start: 20151204, end: 20160304
  11. CISAPRIDE [Suspect]
     Active Substance: CISAPRIDE
     Indication: IMPAIRED GASTRIC EMPTYING
     Route: 048
     Dates: start: 20170530
  12. FEXOFENADINE [Concomitant]
     Active Substance: FEXOFENADINE\FEXOFENADINE HYDROCHLORIDE
     Indication: RHINITIS ALLERGIC
     Route: 048
  13. POTASSIUM GLUCONATE [Concomitant]
     Active Substance: POTASSIUM GLUCONATE
     Indication: BLOOD POTASSIUM DECREASED
     Route: 048
  14. VASOTEC [Concomitant]
     Active Substance: ENALAPRIL MALEATE
     Indication: HYPERTENSION
     Route: 048
  15. CISAPRIDE [Suspect]
     Active Substance: CISAPRIDE
     Indication: CONSTIPATION
     Route: 048
     Dates: start: 20170530
  16. CISAPRIDE [Suspect]
     Active Substance: CISAPRIDE
     Indication: CONSTIPATION
     Route: 048
     Dates: start: 20160305, end: 20170518
  17. CISAPRIDE [Suspect]
     Active Substance: CISAPRIDE
     Indication: GASTROOESOPHAGEAL REFLUX DISEASE
     Route: 048
     Dates: start: 20170530
  18. CISAPRIDE [Suspect]
     Active Substance: CISAPRIDE
     Indication: GASTROOESOPHAGEAL REFLUX DISEASE
     Route: 048
     Dates: start: 20151204, end: 20160304
  19. MIRALAX [Concomitant]
     Active Substance: POLYETHYLENE GLYCOL 3350
     Indication: CONSTIPATION
     Route: 048
  20. OMEPRAZOLE. [Concomitant]
     Active Substance: OMEPRAZOLE
     Indication: GASTROOESOPHAGEAL REFLUX DISEASE
     Route: 048
  21. GABAPENTIN. [Concomitant]
     Active Substance: GABAPENTIN
     Indication: NEUROPATHY PERIPHERAL
     Route: 048
  22. HUMALOG [Concomitant]
     Active Substance: INSULIN LISPRO
     Indication: DIABETES MELLITUS
     Route: 058
  23. LANTUS [Concomitant]
     Active Substance: INSULIN GLARGINE
     Indication: DIABETES MELLITUS
     Route: 058

REACTIONS (1)
  - Electrocardiogram QT prolonged [Recovered/Resolved]

NARRATIVE: CASE EVENT DATE: 20170517
